FAERS Safety Report 9395059 (Version 3)
Quarter: 2013Q4

REPORT INFORMATION
  Report Type: Spontaneous
  Country: AR (occurrence: AR)
  Receive Date: 20130711
  Receipt Date: 20131205
  Transmission Date: 20140711
  Serious: Yes (Other)
  Sender: FDA-Public Use
  Company Number: AR-US-EMD SERONO, INC.-7223165

PATIENT
  Sex: Female

DRUGS (2)
  1. REBIF [Suspect]
     Indication: MULTIPLE SCLEROSIS
     Dates: start: 20120710, end: 201303
  2. REBIF [Suspect]
     Dates: start: 20130910

REACTIONS (3)
  - Spinal cord disorder [Unknown]
  - Hypokinesia [Recovered/Resolved]
  - Injection site pain [Recovering/Resolving]
